FAERS Safety Report 22029127 (Version 1)
Quarter: 2023Q1

REPORT INFORMATION
  Report Type: Spontaneous
  Country: SG (occurrence: SG)
  Receive Date: 20230223
  Receipt Date: 20230223
  Transmission Date: 20230418
  Serious: Yes (Death, Other)
  Sender: FDA-Public Use
  Company Number: SG-JNJFOC-20230231806

PATIENT

DRUGS (2)
  1. IBRUTINIB [Suspect]
     Active Substance: IBRUTINIB
     Indication: Chronic lymphocytic leukaemia
     Route: 048
  2. ZANUBRUTINIB [Suspect]
     Active Substance: ZANUBRUTINIB
     Indication: Chronic lymphocytic leukaemia
     Route: 065

REACTIONS (8)
  - Cardiac disorder [Fatal]
  - Treatment failure [Unknown]
  - Adverse event [Fatal]
  - Neutropenia [Unknown]
  - Atrial flutter [Unknown]
  - Atrial fibrillation [Unknown]
  - Hypertension [Unknown]
  - Infection [Unknown]
